FAERS Safety Report 25189034 (Version 3)
Quarter: 2025Q2

REPORT INFORMATION
  Report Type: Spontaneous
  Country: US (occurrence: US)
  Receive Date: 20250411
  Receipt Date: 20250520
  Transmission Date: 20250716
  Serious: Yes (Other)
  Sender: DOMPE FARMACEUTICI
  Company Number: US-FARMAPROD-202504-1089

PATIENT
  Age: 50 Year
  Sex: Female

DRUGS (3)
  1. OXERVATE [Suspect]
     Active Substance: CENEGERMIN-BKBJ
     Indication: Neurotrophic keratopathy
     Route: 047
     Dates: start: 20250116, end: 202503
  2. OXERVATE [Suspect]
     Active Substance: CENEGERMIN-BKBJ
     Indication: Punctate keratitis
  3. MAXITROL [Concomitant]
     Active Substance: DEXAMETHASONE\NEOMYCIN SULFATE\POLYMYXIN B SULFATE

REACTIONS (7)
  - Ophthalmic herpes simplex [Recovered/Resolved]
  - Eye discharge [Recovering/Resolving]
  - Therapy interrupted [Recovered/Resolved]
  - Off label use [Unknown]
  - Herpes simplex reactivation [Unknown]
  - Eye pain [Unknown]
  - Disease progression [Unknown]
